FAERS Safety Report 12864726 (Version 1)
Quarter: 2016Q4

REPORT INFORMATION
  Report Type: Report from Study
  Country: MX (occurrence: MX)
  Receive Date: 20161020
  Receipt Date: 20161020
  Transmission Date: 20170207
  Serious: Yes (Other)
  Sender: FDA-Public Use
  Company Number: PHHY2016MX141866

PATIENT
  Sex: Female
  Weight: 55 kg

DRUGS (6)
  1. CO-DIOVAN [Suspect]
     Active Substance: HYDROCHLOROTHIAZIDE\VALSARTAN
     Indication: HYPERTENSION
     Dosage: 1 DF (12.5 MG HYDROCHLOROTHIAZIDE/ 80 MG VALSARTAN), QD (10 YEARS AGO)
     Route: 048
  2. CO-DIOVAN [Suspect]
     Active Substance: HYDROCHLOROTHIAZIDE\VALSARTAN
     Dosage: 0.5 DF (12.5 MG HYDROCHLOROTHIAZIDE/ 80 MG VALSARTAN), QD (ABOUT A HALF YEAR AGO)
     Route: 048
  3. ACETYLSALICYLIC ACID [Concomitant]
     Active Substance: ASPIRIN
     Indication: PRODUCT USED FOR UNKNOWN INDICATION
     Dosage: UNK
     Route: 065
  4. CO-DIOVAN [Suspect]
     Active Substance: HYDROCHLOROTHIAZIDE\VALSARTAN
     Dosage: 0.5 DF (12.5 MG HYDROCHLOROTHIAZIDE/ 80 MG VALSARTAN), QD (2 YEARS AGO)
     Route: 048
  5. TEBONIN [Concomitant]
     Active Substance: GINKGO
     Indication: PRODUCT USED FOR UNKNOWN INDICATION
     Dosage: UNK
     Route: 065
  6. DUEXIS [Concomitant]
     Active Substance: FAMOTIDINE\IBUPROFEN
     Indication: PRODUCT USED FOR UNKNOWN INDICATION
     Dosage: UNK
     Route: 065

REACTIONS (4)
  - Drug prescribing error [Not Recovered/Not Resolved]
  - Dementia Alzheimer^s type [Unknown]
  - Blood pressure increased [Unknown]
  - Wrong technique in product usage process [Not Recovered/Not Resolved]
